FAERS Safety Report 12203498 (Version 24)
Quarter: 2019Q3

REPORT INFORMATION
  Report Type: Spontaneous
  Country: US (occurrence: US)
  Receive Date: 20160323
  Receipt Date: 20190828
  Transmission Date: 20191004
  Serious: Yes (Life-Threatening, Congenital Anomaly, Other)
  Sender: FDA-Public Use
  Company Number: PHEH2016US006902

PATIENT
  Sex: Female

DRUGS (1)
  1. ZOFRAN ODT [Suspect]
     Active Substance: ONDANSETRON HYDROCHLORIDE
     Indication: FOETAL EXPOSURE DURING PREGNANCY
     Dosage: MOTHER^S DOSE: 08 MG, PRN
     Route: 064

REACTIONS (82)
  - Atrial septal defect [Unknown]
  - Left-to-right cardiac shunt [Unknown]
  - Pulmonary valve stenosis [Unknown]
  - Right atrial enlargement [Unknown]
  - Cardiac murmur [Unknown]
  - Soft tissue swelling [Unknown]
  - Skin abrasion [Unknown]
  - Contusion [Unknown]
  - Vomiting [Unknown]
  - Dermatitis diaper [Unknown]
  - Coarctation of the aorta [Unknown]
  - Congenital tricuspid valve incompetence [Unknown]
  - Pneumonia [Unknown]
  - Right ventricular hypertrophy [Unknown]
  - Gastric haemorrhage [Unknown]
  - Circulatory collapse [Unknown]
  - Cough [Unknown]
  - Mycoplasma infection [Unknown]
  - Oropharyngeal pain [Unknown]
  - Fatigue [Unknown]
  - Cardiogenic shock [Unknown]
  - Endocarditis staphylococcal [Unknown]
  - Anhedonia [Unknown]
  - Otitis media [Unknown]
  - Pyrexia [Unknown]
  - Skin laceration [Unknown]
  - Headache [Unknown]
  - Poor feeding infant [Unknown]
  - Diarrhoea [Unknown]
  - Bundle branch block right [Unknown]
  - Aorta hypoplasia [Unknown]
  - Skin discolouration [Unknown]
  - Neonatal multi-organ failure [Unknown]
  - Atelectasis neonatal [Unknown]
  - Dyspnoea [Unknown]
  - Sinus tachycardia [Unknown]
  - Pulmonary vein occlusion [Unknown]
  - Atrial enlargement [Unknown]
  - Migraine [Unknown]
  - Dehydration [Unknown]
  - Congenital anomaly [Not Recovered/Not Resolved]
  - Heart disease congenital [Unknown]
  - Mitral valve incompetence [Unknown]
  - Foetal exposure during pregnancy [Unknown]
  - Developmental delay [Unknown]
  - Left ventricular dysfunction [Recovering/Resolving]
  - Hypokalaemia [Unknown]
  - Pain [Unknown]
  - Bronchitis [Unknown]
  - Chest pain [Unknown]
  - Fractured coccyx [Unknown]
  - Right atrial dilatation [Unknown]
  - Gastroenteritis [Unknown]
  - Pallor [Unknown]
  - Cardiac failure congestive [Unknown]
  - Bronchiolitis [Unknown]
  - Left ventricular hypertrophy [Unknown]
  - Ear pain [Unknown]
  - Hypochloraemia [Unknown]
  - Bronchial hyperreactivity [Unknown]
  - Patent ductus arteriosus [Unknown]
  - Congenital hydronephrosis [Unknown]
  - Respiratory rate increased [Unknown]
  - Neonatal respiratory distress [Unknown]
  - Pulmonary valve incompetence [Unknown]
  - Sepsis [Unknown]
  - Neonatal tachypnoea [Unknown]
  - Failure to thrive [Unknown]
  - Right ventricular hypertension [Unknown]
  - Left ventricular dilatation [Unknown]
  - Croup infectious [Unknown]
  - Cardiomegaly [Unknown]
  - Urinary tract infection [Unknown]
  - Pharyngitis streptococcal [Unknown]
  - Viral infection [Unknown]
  - Metabolic acidosis [Unknown]
  - Ventricular septal defect [Unknown]
  - Atrial thrombosis [Unknown]
  - Injury [Not Recovered/Not Resolved]
  - Anxiety [Unknown]
  - Ear infection [Unknown]
  - Infection [Unknown]
